FAERS Safety Report 9645464 (Version 2)
Quarter: 2013Q4

REPORT INFORMATION
  Report Type: Spontaneous
  Country: US (occurrence: None)
  Receive Date: 20131023
  Receipt Date: 20131106
  Transmission Date: 20140711
  Serious: Yes (Hospitalization)
  Sender: FDA-Public Use
  Company Number: 151849

PATIENT
  Age: 67 Year
  Sex: Male
  Weight: 58 kg

DRUGS (1)
  1. LEUCOVORIN CALCIUM [Suspect]
     Indication: PANCREATIC CARCINOMA METASTATIC
     Dosage: CYCLICAL
     Route: 042
     Dates: start: 20130814

REACTIONS (4)
  - Abdominal pain [None]
  - Upper gastrointestinal haemorrhage [None]
  - Anaemia [None]
  - Bile duct obstruction [None]
